FAERS Safety Report 8078559-5 (Version None)
Quarter: 2012Q1

REPORT INFORMATION
  Report Type: 
  Country: None (occurrence: None)
  Receive Date: 20120127
  Receipt Date: 20110101
  Transmission Date: 20120608
  Serious: No
  Sender: FDA-Public Use
  Company Number: US-ABBOTT-11P-163-0694809-00

PATIENT
  Age: 45 Year
  Sex: Male

DRUGS (6)
  1. ACETAMINOPHEN [Concomitant]
     Indication: HEADACHE
  2. ACETAMINOPHEN [Concomitant]
     Indication: SINUS HEADACHE
  3. LODIENE [Concomitant]
     Indication: ARTHRALGIA
  4. UNKNOWN  MEDICATIONS [Concomitant]
     Indication: PSORIASIS
     Route: 061
  5. TACLONEX [Concomitant]
     Indication: PSORIASIS
     Route: 061
  6. HUMIRA [Suspect]
     Indication: PSORIASIS

REACTIONS (2)
  - INJECTION SITE HAEMORRHAGE [None]
  - INJECTION SITE ERYTHEMA [None]
